FAERS Safety Report 8890573 (Version 6)
Quarter: 2015Q2

REPORT INFORMATION
  Report Type: Spontaneous
  Country: BR (occurrence: BR)
  Receive Date: 20121107
  Receipt Date: 20150406
  Transmission Date: 20150821
  Serious: Yes (Death, Other)
  Sender: FDA-Public Use
  Company Number: BR-ROCHE-1149882

PATIENT
  Age: 75 Year
  Sex: Female
  Weight: 78 kg

DRUGS (10)
  1. TAMOXIFEN [Concomitant]
     Active Substance: TAMOXIFEN
     Route: 065
  2. ASPIRIN. [Concomitant]
     Active Substance: ASPIRIN
     Indication: CORONARY ARTERY DISEASE
     Route: 065
  3. AVASTIN [Suspect]
     Active Substance: BEVACIZUMAB
     Indication: METASTASES TO LUNG
     Route: 065
     Dates: start: 201208
  4. XELODA [Suspect]
     Active Substance: CAPECITABINE
     Indication: METASTASES TO LUNG
     Route: 065
     Dates: start: 2010
  5. EVEROLIMUS [Concomitant]
     Active Substance: EVEROLIMUS
     Route: 065
  6. PANTOPRAZOLE [Concomitant]
     Active Substance: PANTOPRAZOLE SODIUM
     Indication: GASTRITIS
     Route: 065
  7. ROSUVASTATIN [Concomitant]
     Active Substance: ROSUVASTATIN
     Indication: BLOOD CHOLESTEROL
     Route: 065
  8. PURAN [Concomitant]
     Active Substance: LEVOTHYROXINE SODIUM
     Indication: HYPOTHYROIDISM
     Route: 065
  9. TRAMADOL [Suspect]
     Active Substance: TRAMADOL
     Indication: PRODUCT USED FOR UNKNOWN INDICATION
     Route: 065
  10. TAXOL [Concomitant]
     Active Substance: PACLITAXEL
     Indication: METASTASES TO LUNG
     Route: 065
     Dates: start: 201208, end: 201302

REACTIONS (9)
  - Anal fistula [Recovered/Resolved]
  - Gingivitis [Recovering/Resolving]
  - Toxic encephalopathy [Recovered/Resolved]
  - Drug ineffective [Unknown]
  - Death [Fatal]
  - Dehydration [Recovered/Resolved]
  - Anal ulcer [Recovered/Resolved]
  - Urinary tract infection [Recovered/Resolved]
  - Illusion [Unknown]

NARRATIVE: CASE EVENT DATE: 20121025
